FAERS Safety Report 5334319-7 (Version None)
Quarter: 2007Q2

REPORT INFORMATION
  Report Type: 
  Country: None (occurrence: None)
  Receive Date: 20070525
  Receipt Date: 20070521
  Transmission Date: 20071010
  Serious: Yes (Death, Hospitalization, Other)
  Sender: FDA-Public Use
  Company Number: PHBS2007JP06288

PATIENT
  Age: 65 Year
  Sex: Male

DRUGS (9)
  1. PREDNISOLONE [Concomitant]
     Indication: FOCAL GLOMERULOSCLEROSIS
     Dosage: 40 MG/DAY
     Route: 065
  2. PREDNISOLONE [Concomitant]
     Dosage: 20 MG/DAY
     Route: 065
  3. PREDNISOLONE [Concomitant]
     Dosage: 15 MG/DAY
     Route: 065
  4. PREDNISOLONE [Concomitant]
     Dosage: 20 MG/DAY
     Route: 065
  5. PREDNISOLONE [Concomitant]
     Dosage: 80 MG/DAY
     Route: 065
  6. PREDNISOLONE [Concomitant]
     Dosage: 50 MG/DAY
     Route: 065
  7. SULFAMETHOXAZOLE W/TRIMETHOPRIM [Suspect]
     Indication: PNEUMOCYSTIS JIROVECI PNEUMONIA
     Route: 065
  8. NEORAL [Suspect]
     Indication: FOCAL GLOMERULOSCLEROSIS
     Dosage: 150 MG/DAY
     Route: 048
     Dates: start: 20061225, end: 20070123
  9. NEORAL [Suspect]
     Dosage: 50 MG/DAY
     Route: 048
     Dates: start: 20061219, end: 20061224

REACTIONS (5)
  - CARDIO-RESPIRATORY ARREST [None]
  - HYPOXIA [None]
  - MYOCARDIAL ISCHAEMIA [None]
  - PNEUMOCYSTIS JIROVECI PNEUMONIA [None]
  - RENAL IMPAIRMENT [None]
